FAERS Safety Report 6126607-1 (Version None)
Quarter: 2009Q1

REPORT INFORMATION
  Report Type: 
  Country: None (occurrence: None)
  Receive Date: 20090320
  Receipt Date: 20090309
  Transmission Date: 20090719
  Serious: Yes (Hospitalization)
  Sender: FDA-Public Use
  Company Number: FI-PFIZER INC-2009180405

PATIENT

DRUGS (3)
  1. CYTOTEC [Suspect]
     Indication: ABORTION
     Dosage: UNK
     Route: 060
     Dates: start: 20090304, end: 20090304
  2. BURANA [Suspect]
     Indication: PAIN
     Route: 048
     Dates: start: 20090304
  3. PANACOD [Suspect]
     Indication: PAIN
     Route: 048
     Dates: start: 20090304

REACTIONS (6)
  - HEART RATE INCREASED [None]
  - HYPERTENSION [None]
  - OFF LABEL USE [None]
  - PHARYNGEAL OEDEMA [None]
  - PYREXIA [None]
  - SWOLLEN TONGUE [None]
